FAERS Safety Report 11411249 (Version 1)
Quarter: 2015Q3

REPORT INFORMATION
  Report Type: Spontaneous
  Country: US (occurrence: US)
  Receive Date: 20150821
  Receipt Date: 20150821
  Transmission Date: 20151125
  Serious: No
  Sender: FDA-Public Use
  Company Number: US-ELI_LILLY_AND_COMPANY-US201005005740

PATIENT
  Sex: Female

DRUGS (4)
  1. NOVOLIN R [Concomitant]
     Active Substance: INSULIN HUMAN
     Dosage: 10 U, EACH EVENING
     Dates: start: 2000
  2. HUMULIN N [Suspect]
     Active Substance: INSULIN HUMAN
     Indication: DIABETES MELLITUS
     Dosage: 5 U, EACH MORNING
     Dates: start: 1988
  3. HUMULIN N [Suspect]
     Active Substance: INSULIN HUMAN
     Dosage: 25 U, EACH EVENING
     Dates: start: 1988
  4. NOVOLOG [Concomitant]
     Active Substance: INSULIN ASPART

REACTIONS (1)
  - Neuropathy peripheral [Not Recovered/Not Resolved]

NARRATIVE: CASE EVENT DATE: 2005
